FAERS Safety Report 7747707-6 (Version None)
Quarter: 2011Q3

REPORT INFORMATION
  Report Type: 
  Country: None (occurrence: None)
  Receive Date: 20110913
  Receipt Date: 20110908
  Transmission Date: 20111222
  Serious: Yes (Other)
  Sender: FDA-Public Use
  Company Number: US-VERTEX PHARMACEUTICALS INC.-AE-2011-001391

PATIENT

DRUGS (1)
  1. INCIVEK [Suspect]

REACTIONS (3)
  - RASH [None]
  - STEVENS-JOHNSON SYNDROME [None]
  - PYREXIA [None]
